FAERS Safety Report 13558281 (Version 2)
Quarter: 2017Q2

REPORT INFORMATION
  Report Type: Spontaneous
  Country: US (occurrence: US)
  Receive Date: 20170517
  Receipt Date: 20170517
  Transmission Date: 20170830
  Serious: Yes (Other)
  Sender: FDA-Public Use
  Company Number: US-JNJFOC-20170505384

PATIENT
  Sex: Female

DRUGS (2)
  1. TYLENOL PM EXTRA STRENGTH [Suspect]
     Active Substance: ACETAMINOPHEN\DIPHENHYDRAMINE HYDROCHLORIDE
     Indication: BACK PAIN
     Dosage: 2 CAPLETS DURING BEDTIME SOMETIMES 3CAPLETS 1X PER DAY
     Route: 048
  2. TYLENOL PM EXTRA STRENGTH [Suspect]
     Active Substance: ACETAMINOPHEN\DIPHENHYDRAMINE HYDROCHLORIDE
     Indication: SLEEP DISORDER THERAPY
     Dosage: 2 CAPLETS DURING BEDTIME SOMETIMES 3CAPLETS 1X PER DAY
     Route: 048

REACTIONS (3)
  - Drug use disorder [Not Recovered/Not Resolved]
  - Extra dose administered [Not Recovered/Not Resolved]
  - Therapeutic response decreased [Unknown]
